FAERS Safety Report 20791773 (Version 1)
Quarter: 2022Q2

REPORT INFORMATION
  Report Type: Report from Study
  Country: US (occurrence: US)
  Receive Date: 20220505
  Receipt Date: 20220505
  Transmission Date: 20220721
  Serious: No
  Sender: FDA-Public Use
  Company Number: US-NOVARTISTESTPH-NVSC2022US103653

PATIENT
  Sex: Male

DRUGS (1)
  1. ENTRESTO [Suspect]
     Active Substance: SACUBITRIL\VALSARTAN
     Indication: Product used for unknown indication
     Dosage: 100 MG, BID (100 MG:24/26 MG: 24.3 MG SACUBITRIL AND 25.7 MG VALSARTAN)
     Route: 048
     Dates: start: 202204

REACTIONS (1)
  - Overweight [Unknown]
